FAERS Safety Report 9139986 (Version 2)
Quarter: 2013Q2

REPORT INFORMATION
  Report Type: Spontaneous
  Country: US (occurrence: US)
  Receive Date: 20130305
  Receipt Date: 20130401
  Transmission Date: 20140414
  Serious: Yes (Hospitalization, Other)
  Sender: FDA-Public Use
  Company Number: US-PFIZER INC-2013077166

PATIENT
  Age: 77 Year
  Sex: Female

DRUGS (6)
  1. ESTRING [Suspect]
     Indication: ATROPHIC VULVOVAGINITIS
     Dosage: 2 MG, EVERY 3 MONTHS
     Route: 067
     Dates: start: 2008, end: 201212
  2. ESTRING [Suspect]
     Indication: CYSTOCELE
  3. ESTRING [Suspect]
     Indication: DEVICE THERAPY
  4. ALENDRONATE [Concomitant]
     Dosage: UNK
  5. SERTRALINE [Concomitant]
     Dosage: 50 MG, UNK
  6. SIMVASTATIN [Concomitant]
     Dosage: UNK

REACTIONS (1)
  - Uterine cancer [Recovering/Resolving]
